FAERS Safety Report 16650576 (Version 3)
Quarter: 2019Q3

REPORT INFORMATION
  Report Type: Report from Study
  Country: NL (occurrence: NL)
  Receive Date: 20190731
  Receipt Date: 20190819
  Transmission Date: 20191004
  Serious: No
  Sender: FDA-Public Use
  Company Number: NL-BEH-2019104781

PATIENT
  Age: 60 Year
  Sex: Female
  Weight: 51 kg

DRUGS (13)
  1. IPRATROPIUM [Concomitant]
     Active Substance: IPRATROPIUM
     Dosage: 250UG/ML PATR 2ML, 4X PER DAY 2 MILLILITER
  2. ZEMAIRA [Suspect]
     Active Substance: .ALPHA.1-PROTEINASE INHIBITOR HUMAN
     Indication: EMPHYSEMA
     Dosage: 5 GRAM, TOT
     Route: 042
  3. AMOXICILLIN/CLAVULANIC ACID [Concomitant]
     Active Substance: AMOXICILLIN\CLAVULANIC ACID
     Dosage: 500/125MG, TID
     Route: 048
     Dates: end: 20180628
  4. SALMETEROL/FLUTICASONE CASCAN [Concomitant]
     Active Substance: FLUTICASONE PROPIONATE\SALMETEROL XINAFOATE
     Dosage: 25/250UG/DO 120DO, 2 DOSES, BID
  5. OMEPRAZOLE. [Concomitant]
     Active Substance: OMEPRAZOLE
     Dosage: 20 MILLIGRAM, QD
     Route: 048
  6. PARACETAMOL [Concomitant]
     Active Substance: ACETAMINOPHEN
     Dosage: 500 MILLIGRAM, QID
     Route: 048
  7. ZEMAIRA [Suspect]
     Active Substance: .ALPHA.1-PROTEINASE INHIBITOR HUMAN
     Indication: ALPHA-1 ANTI-TRYPSIN DEFICIENCY
     Dosage: 240 GRAM, QMT
     Route: 042
  8. TIOTROPIUM [Concomitant]
     Active Substance: TIOTROPIUM
     Dosage: 2.5UG/DO PATR 60DO, 1XPER DAY 5 MICROGRAM INHALE
  9. SPIRIVA [Suspect]
     Active Substance: TIOTROPIUM BROMIDE MONOHYDRATE
  10. MACROGOL 3350;MAGNESIUM SULFATE;POTASSIUM CHLORIDE;POTASSIUM SULFATE;S [Concomitant]
     Dosage: IF NEEDED 2X PER DAY 1 UNIT, PRN
     Route: 048
  11. CALCIUMCARBONAT [Concomitant]
     Dosage: 1 UNIT CHEW, (2.5G/800IE (1000MG CA)QD
     Route: 048
  12. BUDESONIDE. [Concomitant]
     Active Substance: BUDESONIDE
     Dosage: 0.5MG/ML PATR 2ML, BID
     Dates: start: 20190622
  13. ZEMAIRA [Suspect]
     Active Substance: .ALPHA.1-PROTEINASE INHIBITOR HUMAN
     Dosage: 3 GRAM, QW
     Route: 042

REACTIONS (11)
  - Photophobia [Unknown]
  - Fatigue [Unknown]
  - Pyrexia [Recovered/Resolved]
  - Arthralgia [Not Recovered/Not Resolved]
  - Product prescribing error [Not Recovered/Not Resolved]
  - Pain [Unknown]
  - Vision blurred [Unknown]
  - Weight decreased [Unknown]
  - Myalgia [Unknown]
  - Headache [Unknown]
  - Dyspnoea [Unknown]
